FAERS Safety Report 16992722 (Version 2)
Quarter: 2019Q4

REPORT INFORMATION
  Report Type: Spontaneous
  Country: FR (occurrence: FR)
  Receive Date: 20191105
  Receipt Date: 20191114
  Transmission Date: 20200122
  Serious: Yes (Hospitalization, Other)
  Sender: FDA-Public Use
  Company Number: FR-ACCORD-159605

PATIENT
  Age: 56 Year
  Sex: Female

DRUGS (4)
  1. TOCILIZUMAB. [Suspect]
     Active Substance: TOCILIZUMAB
     Indication: ANTISYNTHETASE SYNDROME
     Route: 065
  2. TRIAMCINOLONE [Suspect]
     Active Substance: TRIAMCINOLONE
     Indication: ANTISYNTHETASE SYNDROME
     Dosage: 2 INTRA-ARTICULAR INJECTIONS OF TRIAMCINOLONE 2 MONTHS AND 3 DAYS BEFORE ADMISSION
     Route: 014
  3. PREDNISONE. [Suspect]
     Active Substance: PREDNISONE
     Indication: ANTISYNTHETASE SYNDROME
  4. METHOTREXATE. [Suspect]
     Active Substance: METHOTREXATE
     Indication: ANTISYNTHETASE SYNDROME

REACTIONS (4)
  - Arthritis [Recovered/Resolved]
  - Legionella infection [Recovered/Resolved]
  - Lymphadenopathy [Recovered/Resolved]
  - Cellulitis [Recovered/Resolved]
